FAERS Safety Report 6025245-9 (Version None)
Quarter: 2008Q4

REPORT INFORMATION
  Report Type: 
  Country: None (occurrence: None)
  Receive Date: 20081229
  Receipt Date: 20081229
  Transmission Date: 20090506
  Serious: Yes (Other)
  Sender: FDA-Public Use
  Company Number: None

PATIENT
  Age: 54 Year
  Sex: Female
  Weight: 68.0396 kg

DRUGS (1)
  1. MUCINEX DM [Suspect]
     Indication: ANTITUSSIVE THERAPY
     Dosage: ONE EVERY 12 HOURS BUCCAL
     Route: 002
     Dates: start: 20081226, end: 20081227

REACTIONS (2)
  - HEART RATE INCREASED [None]
  - SOMNOLENCE [None]
